FAERS Safety Report 4892145-7 (Version None)
Quarter: 2006Q1

REPORT INFORMATION
  Report Type: 
  Country: None (occurrence: None)
  Receive Date: 20060126
  Receipt Date: 20050802
  Transmission Date: 20060701
  Serious: Yes (Death)
  Sender: FDA-Public Use
  Company Number: US-BRISTOL-MYERS SQUIBB COMPANY-13059969

PATIENT
  Age: 87 Year

DRUGS (6)
  1. ENKAID [Suspect]
     Indication: VENTRICULAR TACHYCARDIA
     Route: 048
     Dates: start: 19890301, end: 20050701
  2. LEXAPRO [Concomitant]
  3. EXELON [Concomitant]
  4. ASPIRIN [Concomitant]
  5. SYNTHROID [Concomitant]
  6. FLORINEF [Concomitant]

REACTIONS (1)
  - DEATH [None]
